FAERS Safety Report 25945200 (Version 1)
Quarter: 2025Q4

REPORT INFORMATION
  Report Type: Spontaneous
  Country: CN (occurrence: CN)
  Receive Date: 20251021
  Receipt Date: 20251021
  Transmission Date: 20260118
  Serious: Yes (Other)
  Sender: BEIGENE
  Company Number: CN-BEIGENE-BGN-2025-017777

PATIENT
  Age: 61 Year
  Weight: 68 kg

DRUGS (16)
  1. TISLELIZUMAB [Suspect]
     Active Substance: TISLELIZUMAB
     Indication: Lung neoplasm malignant
     Dosage: 200 MILLIGRAM, Q3WK
  2. TISLELIZUMAB [Suspect]
     Active Substance: TISLELIZUMAB
     Dosage: 200 MILLIGRAM, Q3WK
  3. TISLELIZUMAB [Suspect]
     Active Substance: TISLELIZUMAB
     Dosage: 200 MILLIGRAM, Q3WK
     Route: 041
  4. TISLELIZUMAB [Suspect]
     Active Substance: TISLELIZUMAB
     Dosage: 200 MILLIGRAM, Q3WK
     Route: 041
  5. TISLELIZUMAB [Suspect]
     Active Substance: TISLELIZUMAB
     Dosage: 200 MILLIGRAM, Q3WK
  6. TISLELIZUMAB [Suspect]
     Active Substance: TISLELIZUMAB
     Dosage: 200 MILLIGRAM, Q3WK
  7. TISLELIZUMAB [Suspect]
     Active Substance: TISLELIZUMAB
     Dosage: 200 MILLIGRAM, Q3WK
     Route: 041
  8. TISLELIZUMAB [Suspect]
     Active Substance: TISLELIZUMAB
     Dosage: 200 MILLIGRAM, Q3WK
     Route: 041
  9. CARBOPLATIN [Suspect]
     Active Substance: CARBOPLATIN
     Indication: Lung neoplasm malignant
     Dosage: 650 MILLIGRAM, Q3WK
  10. CARBOPLATIN [Suspect]
     Active Substance: CARBOPLATIN
     Dosage: 650 MILLIGRAM, Q3WK
     Route: 041
  11. CARBOPLATIN [Suspect]
     Active Substance: CARBOPLATIN
     Dosage: 650 MILLIGRAM, Q3WK
  12. CARBOPLATIN [Suspect]
     Active Substance: CARBOPLATIN
     Dosage: 650 MILLIGRAM, Q3WK
     Route: 041
  13. PACLITAXEL [Suspect]
     Active Substance: PACLITAXEL
     Indication: Lung neoplasm malignant
     Dosage: 450 MILLIGRAM, Q3WK
  14. PACLITAXEL [Suspect]
     Active Substance: PACLITAXEL
     Dosage: 450 MILLIGRAM, Q3WK
     Route: 041
  15. PACLITAXEL [Suspect]
     Active Substance: PACLITAXEL
     Dosage: 450 MILLIGRAM, Q3WK
  16. PACLITAXEL [Suspect]
     Active Substance: PACLITAXEL
     Dosage: 450 MILLIGRAM, Q3WK
     Route: 041

REACTIONS (1)
  - Neurotoxicity [Unknown]
